FAERS Safety Report 10045584 (Version 1)
Quarter: 2014Q1

REPORT INFORMATION
  Report Type: Spontaneous
  Country: US (occurrence: None)
  Receive Date: 20140306
  Receipt Date: 20140306
  Transmission Date: 20141002
  Serious: Yes (Hospitalization)
  Sender: FDA-Public Use
  Company Number: 163-21880-13060820

PATIENT
  Age: 77 Year
  Sex: Female
  Weight: 70.76 kg

DRUGS (8)
  1. REVLIMID (LENALIDOMIDE) (10 MILLIGRAM, CAPSULES) [Suspect]
     Indication: PLASMA CELL MYELOMA
     Route: 048
     Dates: start: 201204
  2. CRESTOR (ROSUVASTATIN) [Concomitant]
  3. ASA (ACETYLSALICYLIC ACID) [Concomitant]
  4. BUPROPION (BUPROPION) [Concomitant]
  5. COREG (CARVEDILOL) [Concomitant]
  6. DEXAMETHASONE (DEXAMETHASONE) [Concomitant]
  7. REQUIP (ROPINIROLE HYDROCHLORIDE) [Concomitant]
  8. VITAMIN D (ERGOCALCIFEROL) [Concomitant]

REACTIONS (2)
  - Pyrexia [None]
  - Neutropenia [None]
